FAERS Safety Report 23480468 (Version 1)
Quarter: 2024Q1

REPORT INFORMATION
  Report Type: Report from Study
  Country: US (occurrence: US)
  Receive Date: 20240205
  Receipt Date: 20240205
  Transmission Date: 20240410
  Serious: Yes (Other)
  Sender: FDA-Public Use
  Company Number: US-HRARD-2021001096

PATIENT
  Age: 31 Year
  Sex: Male

DRUGS (5)
  1. LYSODREN [Suspect]
     Active Substance: MITOTANE
     Indication: Adrenal gland cancer
     Dosage: 6 X 500 MG TAB TID
     Route: 048
     Dates: start: 20210317
  2. LISINOPRIL [Concomitant]
     Active Substance: LISINOPRIL
     Indication: Product used for unknown indication
     Dosage: 05 MG
  3. ALLOPURINOL [Concomitant]
     Active Substance: ALLOPURINOL
     Indication: Product used for unknown indication
     Dosage: 100 MG
  4. Glycopyrrol [Concomitant]
     Indication: Product used for unknown indication
     Dosage: 01 MG
  5. Hydrocort cream 0.5 % [Concomitant]
     Indication: Product used for unknown indication

REACTIONS (4)
  - Adrenal insufficiency [Recovered/Resolved]
  - Nausea [Recovering/Resolving]
  - Vomiting [Recovering/Resolving]
  - Fatigue [Not Recovered/Not Resolved]

NARRATIVE: CASE EVENT DATE: 20210401
